FAERS Safety Report 6450331-9 (Version None)
Quarter: 2009Q4

REPORT INFORMATION
  Report Type: 
  Country: None (occurrence: None)
  Receive Date: 20091123
  Receipt Date: 20091113
  Transmission Date: 20100525
  Serious: Yes (Other)
  Sender: FDA-Public Use
  Company Number: GB-ROCHE-669142

PATIENT
  Age: 48 Year
  Sex: Female

DRUGS (4)
  1. TAMIFLU [Suspect]
     Indication: H1N1 INFLUENZA
     Route: 065
     Dates: start: 20091103
  2. CARBAMAZEPINE [Concomitant]
  3. PERICYAZINE [Concomitant]
  4. PARACETAMOL [Concomitant]

REACTIONS (1)
  - EPILEPSY [None]
